FAERS Safety Report 8612302 (Version 2)
Quarter: 2014Q1

REPORT INFORMATION
  Report Type: Spontaneous
  Country: US (occurrence: None)
  Receive Date: 20120323
  Receipt Date: 20130305
  Transmission Date: 20141002
  Serious: Yes (Life-Threatening, Hospitalization)
  Sender: FDA-Public Use
  Company Number: 163-21880-11121441

PATIENT
  Age: 72 Year
  Sex: Male

DRUGS (3)
  1. REVLIMID [Suspect]
     Indication: PLASMA CELL MYELOMA
     Dosage: 10 MG, 1 IN 1 D, PO;
     Route: 048
     Dates: start: 200902
  2. ALKERAN (MELPHALAN) (MELPHALAN) [Concomitant]
  3. PREDNISONE [Concomitant]

REACTIONS (7)
  - Full blood count decreased [None]
  - Neutropenia [None]
  - Haemoglobin decreased [None]
  - Red blood cell count decreased [None]
  - Haematocrit decreased [None]
  - Upper respiratory tract infection [None]
  - Platelet count decreased [None]
